FAERS Safety Report 5322358-1 (Version None)
Quarter: 2007Q2

REPORT INFORMATION
  Report Type: 
  Country: None (occurrence: None)
  Receive Date: 20070511
  Receipt Date: 20070509
  Transmission Date: 20071010
  Serious: No
  Sender: FDA-Public Use
  Company Number: US-ELI_LILLY_AND_COMPANY-US200703001920

PATIENT
  Sex: Female

DRUGS (1)
  1. HUMULIN R [Suspect]

REACTIONS (1)
  - DIABETES MELLITUS INADEQUATE CONTROL [None]
